FAERS Safety Report 8204415-5 (Version None)
Quarter: 2012Q1

REPORT INFORMATION
  Report Type: 
  Country: None (occurrence: None)
  Receive Date: 20120313
  Receipt Date: 20120313
  Transmission Date: 20120608
  Serious: Yes (Life-Threatening, Other)
  Sender: FDA-Public Use
  Company Number: None

PATIENT
  Age: 70 Year
  Sex: Male
  Weight: 81.646 kg

DRUGS (2)
  1. PAROXETINE [Concomitant]
     Indication: BIPOLAR DISORDER
     Dosage: 30MG
     Route: 048
     Dates: start: 19960430, end: 20120314
  2. NEVIRAPINE [Suspect]
     Indication: HIV INFECTION
     Dosage: 200.0 MG
     Route: 048
     Dates: start: 20120214, end: 20120314

REACTIONS (6)
  - NIGHTMARE [None]
  - ANXIETY [None]
  - TREMOR [None]
  - SUICIDAL IDEATION [None]
  - HALLUCINATION [None]
  - DRUG WITHDRAWAL SYNDROME [None]
